FAERS Safety Report 8646028 (Version 3)
Quarter: 2013Q4

REPORT INFORMATION
  Report Type: Spontaneous
  Country: JP (occurrence: JP)
  Receive Date: 20120702
  Receipt Date: 20131105
  Transmission Date: 20140711
  Serious: Yes (Hospitalization, Other)
  Sender: FDA-Public Use
  Company Number: JP-009507513-1206USA05350

PATIENT
  Age: 36 Year
  Sex: Male
  Weight: 90 kg

DRUGS (2)
  1. JANUVIA [Suspect]
     Dosage: DAILY DOSAGE UNKNOWN
     Route: 048
     Dates: end: 20120618
  2. JANUVIA TABLETS 100MG [Suspect]
     Indication: DIABETES MELLITUS
     Route: 048
     Dates: end: 20120603

REACTIONS (4)
  - Alcoholic pancreatitis [Recovering/Resolving]
  - Pancreatitis acute [Recovered/Resolved]
  - Feeling abnormal [Recovering/Resolving]
  - Drug ineffective [Recovering/Resolving]
